FAERS Safety Report 14351100 (Version 2)
Quarter: 2018Q1

REPORT INFORMATION
  Report Type: Spontaneous
  Country: US (occurrence: US)
  Receive Date: 20180104
  Receipt Date: 20180112
  Transmission Date: 20180509
  Serious: Yes (Other)
  Sender: FDA-Public Use
  Company Number: US-PFIZER INC-2018000815

PATIENT
  Age: 59 Year
  Sex: Male

DRUGS (1)
  1. BUPIVACAINE HCL [Suspect]
     Active Substance: BUPIVACAINE HYDROCHLORIDE
     Indication: ANAESTHESIA
     Dosage: 6 ML, CYCLIC, HOURLY, INFUSED VIA THE ADDUCTOR CANAL CONTINUOUS PERIPHERAL NERVE BLOCK

REACTIONS (2)
  - Mononeuropathy [Recovered/Resolved]
  - Axonal neuropathy [Recovered/Resolved]
